FAERS Safety Report 11251836 (Version 2)
Quarter: 2015Q3

REPORT INFORMATION
  Report Type: Spontaneous
  Country: BR (occurrence: BR)
  Receive Date: 20150708
  Receipt Date: 20150826
  Transmission Date: 20151125
  Serious: Yes (Hospitalization, Other)
  Sender: FDA-Public Use
  Company Number: BR-ASTRAZENECA-2015SE66389

PATIENT
  Sex: Male

DRUGS (21)
  1. SITAGLIPTIN [Concomitant]
     Active Substance: SITAGLIPTIN
  2. BYETTA [Suspect]
     Active Substance: EXENATIDE
     Indication: TYPE 2 DIABETES MELLITUS
     Route: 058
     Dates: start: 2009, end: 2009
  3. METFORMIN [Suspect]
     Active Substance: METFORMIN HYDROCHLORIDE
     Indication: TYPE 2 DIABETES MELLITUS
     Dosage: NON AZ PRODUCT, 500 MG, UNKNOWN
     Route: 048
  4. SIBUTRAMINE [Concomitant]
     Active Substance: SIBUTRAMINE
     Indication: OBESITY
  5. GLARGINE [Concomitant]
     Indication: TYPE 2 DIABETES MELLITUS
     Dosage: TWO TIMES A DAY
     Route: 058
     Dates: start: 2009, end: 2009
  6. DAPAGLIFLOZIN [Suspect]
     Active Substance: DAPAGLIFLOZIN
     Indication: TYPE 2 DIABETES MELLITUS
     Route: 048
  7. METFORMIN [Suspect]
     Active Substance: METFORMIN HYDROCHLORIDE
     Indication: TYPE 2 DIABETES MELLITUS
     Dosage: METFORMIN XR,  NON AZ PRODUCT, 1 GRAM, UNKNOWN
     Route: 065
     Dates: start: 20140314
  8. HYDROCHLOROTHYAZIDE [Suspect]
     Active Substance: HYDROCHLOROTHIAZIDE
     Dosage: NON AZ PRODUCT, 12.5 MG, DAILY
     Route: 065
     Dates: start: 20140314
  9. METFORMIN/GLIBENCLAMIDE [Suspect]
     Active Substance: GLYBURIDE\METFORMIN
     Indication: TYPE 2 DIABETES MELLITUS
     Dosage: 500/5 MG, THREE TIMES A DAY
     Route: 048
     Dates: start: 2009
  10. PIOGLITAZONE. [Concomitant]
     Active Substance: PIOGLITAZONE
     Indication: TYPE 2 DIABETES MELLITUS
  11. VILDAGLIPTIN [Concomitant]
     Active Substance: VILDAGLIPTIN
  12. DETEMIR [Concomitant]
  13. ORLISTAT [Concomitant]
     Active Substance: ORLISTAT
     Indication: OBESITY
     Dosage: AFTER LUNCH AND DINNER, 120, MG, TWO TIMES A DAY
  14. NPH INSULIN [Concomitant]
     Active Substance: INSULIN BEEF
     Indication: TYPE 2 DIABETES MELLITUS
     Dosage: AT NIGHT
     Route: 058
  15. ROSUVASTATIN [Suspect]
     Active Substance: ROSUVASTATIN
     Route: 048
     Dates: start: 20140314
  16. VALSARTAN. [Concomitant]
     Active Substance: VALSARTAN
  17. GLIBENCLAMIDE [Concomitant]
     Active Substance: GLYBURIDE
  18. INSULIN ASPART [Concomitant]
     Active Substance: INSULIN ASPART
     Indication: TYPE 2 DIABETES MELLITUS
     Dosage: 30-50UI, THREE TIMES A DAY
     Route: 058
  19. RAMIPRIL. [Concomitant]
     Active Substance: RAMIPRIL
     Indication: HYPERTENSION
     Dosage: DAILY
  20. SAXAGLIPTIN/METFORMIN XR [Suspect]
     Active Substance: METFORMIN HYDROCHLORIDE\SAXAGLIPTIN HYDROCHLORIDE
     Indication: TYPE 2 DIABETES MELLITUS
     Dosage: 5/1000 MG, UNKNOWN
     Route: 048
     Dates: start: 20140314
  21. GLARGINE [Concomitant]
     Indication: TYPE 2 DIABETES MELLITUS
     Dosage: INCREASED GLARGINE DOSE FOR 24 DOSES
     Route: 058

REACTIONS (6)
  - Hepatic steatosis [Unknown]
  - Blood glucose increased [Recovered/Resolved]
  - Hypoglycaemia [Unknown]
  - Liposarcoma [Unknown]
  - Sleep apnoea syndrome [Unknown]
  - Weight increased [Unknown]

NARRATIVE: CASE EVENT DATE: 2009
